FAERS Safety Report 8977069 (Version 1)
Quarter: 2012Q4

REPORT INFORMATION
  Report Type: Report from Study
  Country: US (occurrence: US)
  Receive Date: 20121220
  Receipt Date: 20121220
  Transmission Date: 20130627
  Serious: Yes (Death)
  Sender: FDA-Public Use
  Company Number: US-JNJFOC-20121207785

PATIENT
  Age: 47 None
  Sex: Female
  Weight: 68.04 kg

DRUGS (2)
  1. SIMPONI [Suspect]
     Indication: RHEUMATOID ARTHRITIS
     Route: 058
  2. INHALER NOS [Concomitant]

REACTIONS (3)
  - Asthma [Unknown]
  - Asthma [Fatal]
  - Heart rate decreased [Unknown]
